FAERS Safety Report 5724049-1 (Version None)
Quarter: 2008Q2

REPORT INFORMATION
  Report Type: 
  Country: None (occurrence: None)
  Receive Date: 20080430
  Receipt Date: 20080319
  Transmission Date: 20081010
  Serious: Yes (Death, Hospitalization)
  Sender: FDA-Public Use
  Company Number: US-BOEHRINGER INGELHEIM GMBH, GERMANY-2003-BP-04992BP

PATIENT
  Age: 33 Year
  Sex: Female
  Weight: 101 kg

DRUGS (4)
  1. VIRAMUNE [Suspect]
     Indication: HIV INFECTION
     Route: 048
     Dates: start: 20030618, end: 20030723
  2. COMBIVIR [Suspect]
     Indication: HIV INFECTION
     Dates: start: 20030618, end: 20030723
  3. IRON [Concomitant]
  4. VITAMIN TAB [Concomitant]

REACTIONS (4)
  - ALANINE AMINOTRANSFERASE INCREASED [None]
  - ASPARTATE AMINOTRANSFERASE INCREASED [None]
  - HEPATOTOXICITY [None]
  - MULTI-ORGAN FAILURE [None]
